FAERS Safety Report 4864151-X (Version None)
Quarter: 2005Q4

REPORT INFORMATION
  Report Type: 
  Country: None (occurrence: None)
  Receive Date: 20051222
  Receipt Date: 20051220
  Transmission Date: 20060501
  Serious: Yes (Hospitalization)
  Sender: FDA-Public Use
  Company Number: FR-GLAXOSMITHKLINE-B0404333A

PATIENT
  Age: 75 Year
  Sex: Female

DRUGS (4)
  1. AUGMENTIN [Suspect]
     Indication: CONJUNCTIVITIS
     Dosage: 1G TWICE PER DAY
     Route: 048
     Dates: start: 20050829, end: 20050830
  2. TIMABAK [Concomitant]
     Route: 065
  3. PYOSTACINE [Concomitant]
     Route: 065
     Dates: start: 20050830
  4. MAXILASE [Concomitant]
     Dates: start: 20050830

REACTIONS (4)
  - BLISTER [None]
  - ERYTHEMA [None]
  - ERYTHEMA MULTIFORME [None]
  - SKIN LESION [None]
